FAERS Safety Report 8030130-7 (Version None)
Quarter: 2012Q1

REPORT INFORMATION
  Report Type: 
  Country: None (occurrence: None)
  Receive Date: 20120109
  Receipt Date: 20120105
  Transmission Date: 20120608
  Serious: No
  Sender: FDA-Public Use
  Company Number: US-B.I. PHARMACEUTICALS,INC./RIDGEFIELD-2011-BP-03193BP

PATIENT
  Sex: Male

DRUGS (7)
  1. FOSAMAX [Concomitant]
     Indication: OSTEOPOROSIS
     Route: 048
     Dates: start: 20070101, end: 20110401
  2. PRADAXA [Suspect]
     Indication: COAGULOPATHY
     Dosage: 300 MG
     Route: 048
     Dates: start: 20110125
  3. CALCIUM ACETATE [Concomitant]
     Indication: OSTEOPOROSIS
     Route: 048
  4. PRADAXA [Suspect]
     Indication: PROTEIN S DEFICIENCY
  5. VITAMIN D [Concomitant]
     Indication: OSTEOPOROSIS
     Route: 048
  6. MULTI-VITAMIN [Concomitant]
     Indication: SUPPLEMENTATION THERAPY
     Route: 048
  7. VITAMIN K TAB [Concomitant]
     Indication: SUPPLEMENTATION THERAPY
     Route: 048

REACTIONS (3)
  - ABDOMINAL DISCOMFORT [None]
  - OSTEOPOROSIS [None]
  - DYSPEPSIA [None]
